FAERS Safety Report 5577402-3 (Version None)
Quarter: 2007Q4

REPORT INFORMATION
  Report Type: 
  Country: None (occurrence: None)
  Receive Date: 20071228
  Receipt Date: 20071218
  Transmission Date: 20080405
  Serious: Yes (Hospitalization)
  Sender: FDA-Public Use
  Company Number: BR-PFIZER INC-2007106869

PATIENT
  Sex: Male

DRUGS (5)
  1. GLIBENCLAMIDE TABLET [Suspect]
     Indication: TYPE 2 DIABETES MELLITUS
     Dosage: DAILY DOSE:25MG
     Route: 048
  2. GLYBURIDE [Suspect]
     Indication: TYPE 2 DIABETES MELLITUS
     Route: 048
  3. SIMVASTATIN [Concomitant]
     Dates: start: 20060218, end: 20071008
  4. ATENOLOL [Concomitant]
     Dates: start: 20070710, end: 20071008
  5. ACETYLSALICYLIC ACID SRT [Concomitant]
     Dates: start: 20070710, end: 20071001

REACTIONS (1)
  - CORONARY ARTERY DISEASE [None]
